FAERS Safety Report 8743570 (Version 3)
Quarter: 2013Q1

REPORT INFORMATION
  Report Type: Spontaneous
  Country: US (occurrence: US)
  Receive Date: 20120824
  Receipt Date: 20130218
  Transmission Date: 20140127
  Serious: Yes (Other)
  Sender: FDA-Public Use
  Company Number: CHPA2012US018290

PATIENT
  Age: 76 Year
  Sex: Female

DRUGS (3)
  1. 4 WAY FAST ACTING NASAL SPRAY [Suspect]
     Indication: NASAL CONGESTION
     Dosage: ONE SQURIT IN EACH NOSTRIL, EVERYNIGHT AS NEEDED
     Route: 045
     Dates: start: 1992
  2. DRUG THERAPY NOS [Suspect]
     Dosage: UNK, UNK
  3. MORPHINE [Suspect]
     Dosage: UNK, UNK

REACTIONS (9)
  - Cerebrovascular accident [Recovered/Resolved]
  - Hemiparesis [Recovered/Resolved]
  - Hypokinesia [Recovered/Resolved]
  - Periarthritis [Recovered/Resolved]
  - Hallucination, visual [Recovered/Resolved]
  - Headache [Recovered/Resolved]
  - Pain in extremity [Unknown]
  - Hypertension [Not Recovered/Not Resolved]
  - Expired drug administered [Unknown]
